FAERS Safety Report 5229842-X (Version None)
Quarter: 2007Q1

REPORT INFORMATION
  Report Type: 
  Country: None (occurrence: None)
  Receive Date: 20070206
  Receipt Date: 20061108
  Transmission Date: 20070707
  Serious: No
  Sender: FDA-Public Use
  Company Number: US-GLAXOSMITHKLINE-A0626738A

PATIENT
  Sex: Female
  Weight: 143.2 kg

DRUGS (4)
  1. PAXIL [Suspect]
     Dosage: 20MG AT NIGHT
     Route: 048
     Dates: start: 20010101
  2. SYNTHROID [Concomitant]
  3. UNSPECIFIED MEDICATION [Concomitant]
     Indication: DEPRESSION
  4. ADVIL [Concomitant]

REACTIONS (1)
  - WEIGHT INCREASED [None]
